FAERS Safety Report 24399209 (Version 2)
Quarter: 2024Q4

REPORT INFORMATION
  Report Type: Report from Study
  Country: US (occurrence: US)
  Receive Date: 20241004
  Receipt Date: 20241113
  Transmission Date: 20250114
  Serious: No
  Sender: IPSEN BIOPHARMACEUTICALS, INC.
  Company Number: US-IPSEN Group, Research and Development-2024-19737

PATIENT
  Age: 63 Year
  Sex: Female

DRUGS (11)
  1. IQIRVO [Suspect]
     Active Substance: ELAFIBRANOR
     Indication: Primary biliary cholangitis
     Dosage: 80 MG DAILY
     Route: 048
     Dates: start: 20240802
  2. MELATONIN [Concomitant]
     Active Substance: MELATONIN
  3. ASPIRIN [Concomitant]
     Active Substance: ASPIRIN
  4. VITAMIN D3 [Concomitant]
     Active Substance: CHOLECALCIFEROL
  5. ATORVASTATIN CALCIUM [Concomitant]
     Active Substance: ATORVASTATIN CALCIUM
  6. ABILIFY [Concomitant]
     Active Substance: ARIPIPRAZOLE
  7. CYMBALTA [Concomitant]
     Active Substance: DULOXETINE HYDROCHLORIDE
  8. SYNTHROID [Concomitant]
     Active Substance: LEVOTHYROXINE SODIUM
  9. PANTOPRAZOLE SODIUM [Concomitant]
     Active Substance: PANTOPRAZOLE SODIUM
     Dosage: 20 MG TABLET DR
  10. URSODIOL [Concomitant]
     Active Substance: URSODIOL
     Dosage: 20 MG TABLET DR
  11. XARELTO [Concomitant]
     Active Substance: RIVAROXABAN

REACTIONS (3)
  - Tooth fracture [Unknown]
  - Haematoma [Recovering/Resolving]
  - Dental operation [Unknown]

NARRATIVE: CASE EVENT DATE: 20241025
